FAERS Safety Report 8824886 (Version 1)
Quarter: 2012Q4

REPORT INFORMATION
  Report Type: 
  Country: US (occurrence: US)
  Receive Date: 20121004
  Receipt Date: 20121004
  Transmission Date: 20130627
  Serious: No
  Sender: FDA-Public Use
  Company Number: US-009507513-1209USA007847

PATIENT
  Sex: Female

DRUGS (2)
  1. NASONEX [Suspect]
     Dosage: 2 DF, qd
     Route: 045
  2. GEMFIBROZIL [Concomitant]

REACTIONS (1)
  - Nasal discomfort [Recovered/Resolved]
